FAERS Safety Report 6003739-X (Version None)
Quarter: 2008Q4

REPORT INFORMATION
  Report Type: 
  Country: None (occurrence: None)
  Receive Date: 20081212
  Receipt Date: 20081201
  Transmission Date: 20090506
  Serious: Yes (Life-Threatening, Hospitalization, Other)
  Sender: FDA-Public Use
  Company Number: 54769

PATIENT
  Age: 52 Year
  Sex: Male

DRUGS (1)
  1. LEUCOVORIN CALCIUM [Suspect]
     Indication: PANCREATIC CARCINOMA
     Dosage: 400MG/M2 X EVERY 2 WEEKS
     Dates: start: 20081015, end: 20081028

REACTIONS (5)
  - COMA [None]
  - DEHYDRATION [None]
  - ENCEPHALOPATHY [None]
  - NEPHROPATHY TOXIC [None]
  - THROMBOCYTOPENIA [None]
